FAERS Safety Report 4956705-7 (Version None)
Quarter: 2006Q1

REPORT INFORMATION
  Report Type: 
  Country: None (occurrence: None)
  Receive Date: 20060329
  Receipt Date: 20060306
  Transmission Date: 20060701
  Serious: Yes (Death, Life-Threatening, Hospitalization, Disabling, Other)
  Sender: FDA-Public Use
  Company Number: US-GLAXOSMITHKLINE-A0596297A

PATIENT
  Age: 43 Year
  Sex: Male
  Weight: 90 kg

DRUGS (7)
  1. EPZICOM [Suspect]
     Indication: HIV INFECTION
     Dosage: 1TAB PER DAY
     Route: 048
     Dates: start: 20060220, end: 20060301
  2. KALETRA [Concomitant]
     Indication: HIV INFECTION
     Dosage: 2TAB TWICE PER DAY
     Route: 048
     Dates: start: 20060220, end: 20060226
  3. VIREAD [Concomitant]
     Indication: HIV INFECTION
     Dosage: 1TAB PER DAY
     Route: 048
     Dates: start: 20060220, end: 20060226
  4. XANAX [Concomitant]
     Indication: DEPRESSION
     Dosage: .25MG TWICE PER DAY
     Route: 048
  5. PAXIL CR [Concomitant]
     Indication: DEPRESSION
     Dosage: 25MG PER DAY
     Route: 048
  6. BACTRIM DS [Concomitant]
     Indication: PROPHYLAXIS
     Dosage: 1TAB PER DAY
     Route: 048
  7. OMEPRAZOLE [Concomitant]

REACTIONS (17)
  - ABDOMINAL DISTENSION [None]
  - ABDOMINAL PAIN [None]
  - BLOOD BICARBONATE DECREASED [None]
  - BLOOD POTASSIUM DECREASED [None]
  - CARDIO-RESPIRATORY ARREST [None]
  - DIARRHOEA [None]
  - FATIGUE [None]
  - GASTRIC DISORDER [None]
  - HYPERSENSITIVITY [None]
  - HYPOTENSION [None]
  - MALAISE [None]
  - MULTI-ORGAN FAILURE [None]
  - MYALGIA [None]
  - NAUSEA [None]
  - RASH [None]
  - RHABDOMYOLYSIS [None]
  - VOMITING [None]
